FAERS Safety Report 4654591-6 (Version None)
Quarter: 2005Q2

REPORT INFORMATION
  Report Type: 
  Country: None (occurrence: None)
  Receive Date: 20050503
  Receipt Date: 20050503
  Transmission Date: 20051028
  Serious: No
  Sender: FDA-Public Use
  Company Number: None

PATIENT
  Age: 81 Year
  Sex: Male
  Weight: 68.9467 kg

DRUGS (1)
  1. MIRTAZAPINE [Suspect]
     Indication: DEPRESSION
     Dosage: 15MG    QHS    ORAL
     Route: 048
     Dates: start: 20041022, end: 20041025

REACTIONS (2)
  - NOCTURIA [None]
  - POLLAKIURIA [None]
